FAERS Safety Report 7439400-4 (Version None)
Quarter: 2011Q2

REPORT INFORMATION
  Report Type: 
  Country: None (occurrence: None)
  Receive Date: 20110421
  Receipt Date: 20110421
  Transmission Date: 20111010
  Serious: Yes (Life-Threatening)
  Sender: FDA-Public Use
  Company Number: None

PATIENT
  Age: 57 Year
  Sex: Female

DRUGS (1)
  1. PREMARIN [Suspect]
     Indication: HORMONE REPLACEMENT THERAPY
     Dosage: ONCE A DAY ORALLY
     Route: 048
     Dates: start: 20110301, end: 20110313

REACTIONS (9)
  - PYREXIA [None]
  - VOMITING [None]
  - SOMNOLENCE [None]
  - DYSPNOEA [None]
  - NAUSEA [None]
  - PAIN [None]
  - HEART RATE INCREASED [None]
  - DIZZINESS [None]
  - CHROMATURIA [None]
